FAERS Safety Report 9529158 (Version 2)
Quarter: 2013Q3

REPORT INFORMATION
  Report Type: Not Available
  Country: US (occurrence: US)
  Receive Date: 20130916
  Receipt Date: 20130916
  Transmission Date: 20140515
  Serious: Yes (Other)
  Sender: FDA-Public Use
  Company Number: US-LUNDBECK-DKLU1090314

PATIENT
  Age: 28 Year
  Sex: Female

DRUGS (5)
  1. ONFI [Suspect]
     Indication: LENNOX-GASTAUT SYNDROME
  2. ONFI [Suspect]
  3. KEPPRA [Concomitant]
     Indication: PRODUCT USED FOR UNKNOWN INDICATION
  4. BANZEL [Concomitant]
     Indication: PRODUCT USED FOR UNKNOWN INDICATION
  5. DEPAKOTE [Concomitant]
     Indication: PRODUCT USED FOR UNKNOWN INDICATION

REACTIONS (2)
  - Atonic seizures [Recovered/Resolved]
  - Laceration [Recovering/Resolving]
